FAERS Safety Report 8111489-9 (Version None)
Quarter: 2012Q1

REPORT INFORMATION
  Report Type: 
  Country: None (occurrence: None)
  Receive Date: 20120203
  Receipt Date: 20120126
  Transmission Date: 20120608
  Serious: Yes (Other)
  Sender: FDA-Public Use
  Company Number: US-CELGENEUS-163-21880-12012878

PATIENT
  Sex: Male
  Weight: 78.2 kg

DRUGS (20)
  1. REVLIMID [Suspect]
     Indication: MULTIPLE MYELOMA
     Dosage: 20 MILLIGRAM
     Route: 048
     Dates: start: 20100618, end: 20110518
  2. PROCHLORPERAZINE [Concomitant]
     Indication: NAUSEA
     Dosage: 10 MILLIGRAM
     Route: 048
     Dates: start: 20100709
  3. LORAZEPAM [Concomitant]
     Indication: ANXIETY
     Dosage: 1 MILLIGRAM
     Route: 048
     Dates: start: 20100830
  4. CITALOPRAM HYDROBROMIDE [Concomitant]
     Indication: ANXIETY
     Dosage: 20 MILLIGRAM
     Route: 048
     Dates: start: 20100902
  5. POTASSIUM CHLORIDE [Concomitant]
     Dosage: 2 TABLET
     Route: 048
     Dates: start: 20100723
  6. ONDANSETRON [Concomitant]
     Indication: VOMITING
  7. AMBIEN [Concomitant]
     Indication: INSOMNIA
     Dosage: 5 MILLIGRAM
     Route: 048
     Dates: start: 20100621
  8. MORPHINE [Concomitant]
     Indication: PAIN MANAGEMENT
     Dosage: 15 MILLIGRAM
     Route: 048
     Dates: start: 20100628
  9. ALLOPURINOL [Concomitant]
     Dosage: 300 MILLIGRAM
     Route: 048
     Dates: start: 20100611
  10. ASPIRIN [Concomitant]
     Indication: PROPHYLAXIS
     Dosage: 325 MILLIGRAM
     Route: 048
     Dates: start: 20100618
  11. ONDANSETRON [Concomitant]
     Indication: NAUSEA
     Dosage: 8 MILLIGRAM
     Route: 048
     Dates: start: 20100723
  12. VORINOSTAT [Suspect]
     Indication: MULTIPLE MYELOMA
     Dosage: 200 MILLIGRAM
     Route: 048
     Dates: start: 20100618, end: 20110518
  13. OXYCODONE HCL [Concomitant]
     Indication: PAIN MANAGEMENT
     Dosage: 20 MILLIGRAM
     Route: 048
     Dates: start: 20100813
  14. BACTRIM DS [Concomitant]
     Indication: PROPHYLAXIS
     Dosage: 1 TABLET
     Route: 048
     Dates: start: 20100618
  15. COLACE [Concomitant]
     Indication: BLOOD PRESSURE
     Dosage: 100 MILLIGRAM
     Route: 048
     Dates: start: 20100830
  16. ACYCLOVIR [Concomitant]
     Indication: PROPHYLAXIS
     Dosage: 400 MILLIGRAM
     Route: 048
     Dates: start: 20100609
  17. PROCHLORPERAZINE [Concomitant]
     Indication: VOMITING
  18. VELCADE [Suspect]
     Indication: MULTIPLE MYELOMA
     Dosage: 1.3 MILLIGRAM/SQ. METER
     Route: 065
     Dates: start: 20100618, end: 20110518
  19. DEXAMETHASONE [Suspect]
     Indication: MULTIPLE MYELOMA
     Dosage: 20 MILLIGRAM
     Route: 065
     Dates: start: 20100618, end: 20110318
  20. OXYCONTIN [Concomitant]
     Indication: PAIN MANAGEMENT
     Dosage: 40 MILLIGRAM
     Route: 048
     Dates: start: 20100830

REACTIONS (1)
  - RECTAL CANCER [None]
